FAERS Safety Report 15388984 (Version 2)
Quarter: 2018Q3

REPORT INFORMATION
  Report Type: Report from Study
  Country: US (occurrence: US)
  Receive Date: 20180917
  Receipt Date: 20180924
  Transmission Date: 20181010
  Serious: Yes (Death, Hospitalization, Other)
  Sender: FDA-Public Use
  Company Number: US-BRISTOL-MYERS SQUIBB COMPANY-BMS-2018-077036

PATIENT
  Age: 70 Year
  Sex: Male
  Weight: 88.5 kg

DRUGS (3)
  1. IPILIMUMAB [Suspect]
     Active Substance: IPILIMUMAB
     Indication: SQUAMOUS CELL CARCINOMA OF LUNG
     Dosage: 88 MG, UNK
     Route: 042
     Dates: end: 20180502
  2. PREDNISOLONE. [Suspect]
     Active Substance: PREDNISOLONE
     Indication: PRODUCT USED FOR UNKNOWN INDICATION
     Route: 065
  3. NIVOLUMAB [Suspect]
     Active Substance: NIVOLUMAB
     Indication: SQUAMOUS CELL CARCINOMA OF LUNG
     Dosage: 265 MG, UNK
     Route: 042
     Dates: end: 20180502

REACTIONS (5)
  - Oedema peripheral [Recovering/Resolving]
  - Interstitial lung disease [Unknown]
  - Hypoxia [Unknown]
  - Respiratory failure [Fatal]
  - Skin infection [Recovering/Resolving]

NARRATIVE: CASE EVENT DATE: 20180723
